FAERS Safety Report 8127800-9 (Version None)
Quarter: 2012Q1

REPORT INFORMATION
  Report Type: 
  Country: None (occurrence: None)
  Receive Date: 20120210
  Receipt Date: 20120202
  Transmission Date: 20120608
  Serious: No
  Sender: FDA-Public Use
  Company Number: US-B.I. PHARMACEUTICALS,INC./RIDGEFIELD-2012-BP-02061BP

PATIENT
  Age: 71 Year
  Sex: Female

DRUGS (6)
  1. LASIX [Concomitant]
  2. ASPIRIN [Concomitant]
  3. ALDACTONE [Concomitant]
  4. DIOVAN [Concomitant]
  5. PRADAXA [Suspect]
     Indication: ATRIAL FIBRILLATION
     Dosage: 300 MG
     Route: 048
     Dates: start: 20110310, end: 20110413
  6. TOPROL-XL [Concomitant]

REACTIONS (1)
  - GOUT [None]
